FAERS Safety Report 8416323-5 (Version None)
Quarter: 2012Q2

REPORT INFORMATION
  Report Type: 
  Country: None (occurrence: None)
  Receive Date: 20120323
  Receipt Date: 20110804
  Transmission Date: 20120825
  Serious: Yes (Hospitalization)
  Sender: FDA-Public Use
  Company Number: 163-21880-11080887

PATIENT
  Age: 84 Year
  Sex: Female

DRUGS (9)
  1. RESTORIL [Concomitant]
  2. XANAX [Concomitant]
  3. REVLIMID [Suspect]
     Indication: MYELODYSPLASTIC SYNDROME
     Dosage: 10 MG, 1 IN 1 D, PO
     Route: 048
     Dates: start: 20100812
  4. BENADRYL ALLERGY (BENADRYL ALLERGY) [Concomitant]
  5. PROCHLORPERAZINE MALEATE (PROCHLORPERAZINE MALEATE) [Concomitant]
  6. ENALAPRIL MALEATE [Concomitant]
  7. PROTONIX [Concomitant]
  8. VICODIN HP (VICODIN) [Concomitant]
  9. COLACE (DOCUSATE SODIUM) [Concomitant]

REACTIONS (1)
  - HAEMOGLOBIN DECREASED [None]
